FAERS Safety Report 6164000-6 (Version None)
Quarter: 2009Q2

REPORT INFORMATION
  Report Type: 
  Country: None (occurrence: None)
  Receive Date: 20090422
  Receipt Date: 20090413
  Transmission Date: 20091009
  Serious: Yes (Hospitalization)
  Sender: FDA-Public Use
  Company Number: JP-AVENTIS-200911055JP

PATIENT
  Age: 69 Year
  Sex: Male

DRUGS (3)
  1. AMARYL [Suspect]
     Indication: TYPE 2 DIABETES MELLITUS
     Route: 048
     Dates: start: 20081012
  2. ORAL BLOOD GLUCOSE LOWERING DRUGS [Suspect]
     Indication: TYPE 2 DIABETES MELLITUS
     Dosage: DOSE: 1 TABLET/DAY
     Route: 048
     Dates: start: 20090110
  3. ORAL BLOOD GLUCOSE LOWERING DRUGS [Suspect]
     Dosage: DOSE: 1 TABLET/DAY
     Route: 048
     Dates: start: 20090405

REACTIONS (1)
  - MYOCARDIAL INFARCTION [None]
